FAERS Safety Report 11072324 (Version 1)
Quarter: 2015Q2

REPORT INFORMATION
  Report Type: Report from Study
  Country: DE (occurrence: DE)
  Receive Date: 20150428
  Receipt Date: 20150428
  Transmission Date: 20150821
  Serious: Yes (Hospitalization)
  Sender: FDA-Public Use
  Company Number: DE-TEVA-556639GER

PATIENT
  Age: 49 Year
  Sex: Female
  Weight: 105 kg

DRUGS (5)
  1. MYOCET [Suspect]
     Active Substance: DOXORUBICIN
     Indication: BREAST CANCER FEMALE
     Dosage: LAST DOSE PRIOR TO SAE: 24-MAR-2015
     Route: 042
     Dates: start: 20150112, end: 20150331
  2. NEUPOGEN [Concomitant]
     Active Substance: FILGRASTIM
     Dates: start: 20150325, end: 20150326
  3. PACLITAXEL. [Suspect]
     Active Substance: PACLITAXEL
     Indication: BREAST CANCER FEMALE
     Dosage: LAST DOSE PRIOR TO SAE: 24-MAR-2015
     Route: 042
     Dates: start: 20150112, end: 20150331
  4. TRASTUZUMAB [Suspect]
     Active Substance: TRASTUZUMAB
     Indication: BREAST CANCER FEMALE
     Dosage: LAST DOSE PRIOR TO SAE: 24-MAR-2015
     Route: 042
     Dates: start: 20150112, end: 20150331
  5. PERTUZUMAB [Suspect]
     Active Substance: PERTUZUMAB
     Dosage: LAST DOSE PRIOR TO SAE: 11-MAR-2015
     Route: 042
     Dates: start: 20150112, end: 20150331

REACTIONS (1)
  - Palmar-plantar erythrodysaesthesia syndrome [Not Recovered/Not Resolved]

NARRATIVE: CASE EVENT DATE: 20150331
